FAERS Safety Report 4955903-6 (Version None)
Quarter: 2006Q1

REPORT INFORMATION
  Report Type: 
  Country: None (occurrence: None)
  Receive Date: 20060327
  Receipt Date: 20060327
  Transmission Date: 20060701
  Serious: Yes (Death, Life-Threatening, Hospitalization)
  Sender: FDA-Public Use
  Company Number: None

PATIENT
  Age: 56 Year
  Sex: Male
  Weight: 61.6892 kg

DRUGS (2)
  1. ERBITUX [Suspect]
     Indication: PANCREATIC CARCINOMA
     Dosage: 720 MG ONCE IV
     Route: 042
     Dates: start: 20060323, end: 20060323
  2. HYDROCODONE 5/ACETAMINOPHEN [Concomitant]

REACTIONS (9)
  - BLOOD PRESSURE DECREASED [None]
  - DEFAECATION URGENCY [None]
  - DIARRHOEA [None]
  - ERYTHEMA [None]
  - FEELING ABNORMAL [None]
  - FLUSHING [None]
  - NAUSEA [None]
  - PRURITUS [None]
  - SINUS TACHYCARDIA [None]
